FAERS Safety Report 7621065-X (Version None)
Quarter: 2011Q3

REPORT INFORMATION
  Report Type: 
  Country: None (occurrence: None)
  Receive Date: 20110719
  Receipt Date: 20101215
  Transmission Date: 20111222
  Serious: No
  Sender: FDA-Public Use
  Company Number: US-KINGPHARMUSA00001-K201001510

PATIENT
  Sex: Female

DRUGS (2)
  1. LEVOXYL [Suspect]
     Dosage: 100 MCG, UNK
     Route: 048
  2. LEVOXYL [Suspect]
     Dosage: 112 MCG, UNK
     Route: 048

REACTIONS (2)
  - DRUG INEFFECTIVE [None]
  - MALAISE [None]
